FAERS Safety Report 23196369 (Version 1)
Quarter: 2023Q4

REPORT INFORMATION
  Report Type: Report from Study
  Country: RU (occurrence: None)
  Receive Date: 20231117
  Receipt Date: 20231117
  Transmission Date: 20240109
  Serious: Yes (Hospitalization)
  Sender: FDA-Public Use
  Company Number: RU-ROCHE-3456863

PATIENT
  Age: 49 Year
  Sex: Female
  Weight: 73.4 kg

DRUGS (3)
  1. OCRELIZUMAB [Suspect]
     Active Substance: OCRELIZUMAB
     Indication: Primary progressive multiple sclerosis
     Dosage: ON 27/APR/2022, SHE RECEIVED MOST RECENT DOSE OF BLINDED OCRELIZUMAB PRIOR TO AE AND SAE
     Route: 042
     Dates: start: 20200527
  2. OCRELIZUMAB [Suspect]
     Active Substance: OCRELIZUMAB
     Indication: Primary progressive multiple sclerosis
     Dosage: DOSE CONCENTRATION: 1.15384615 MG/ML?ON 31/MAY/2023 SHE RECEIVED MOST RECENT DOSE 300 MG OPEN LABEL
     Route: 042
     Dates: start: 20230510
  3. ETHINYL ESTRADIOL\GESTODENE [Concomitant]
     Active Substance: ETHINYL ESTRADIOL\GESTODENE
     Indication: Oral contraception
     Route: 048
     Dates: start: 201901

REACTIONS (1)
  - Peritonsillar abscess [Recovered/Resolved]

NARRATIVE: CASE EVENT DATE: 20231018
